FAERS Safety Report 10252964 (Version 2)
Quarter: 2014Q2

REPORT INFORMATION
  Report Type: Spontaneous
  Country: US (occurrence: US)
  Receive Date: 20140623
  Receipt Date: 20140630
  Transmission Date: 20141212
  Serious: Yes (Other)
  Sender: FDA-Public Use
  Company Number: US-PFIZER INC-2014170384

PATIENT
  Age: 56 Year
  Sex: Female
  Weight: 68.03 kg

DRUGS (3)
  1. NEURONTIN [Suspect]
     Indication: MIGRAINE
     Dosage: 300 MG, 1OR 2-3/DAY
     Route: 048
     Dates: start: 20140416, end: 20140514
  2. NEURONTIN [Suspect]
     Indication: SPONDYLITIS
  3. CRESTOR [Concomitant]
     Indication: LIVER DISORDER
     Dosage: UNK

REACTIONS (7)
  - Eye disorder [Unknown]
  - Rash [Unknown]
  - Nausea [Unknown]
  - Liver function test abnormal [Unknown]
  - Blood glucose increased [Unknown]
  - Intraocular pressure increased [Unknown]
  - Drug ineffective [Unknown]
